FAERS Safety Report 8157891-0 (Version None)
Quarter: 2012Q1

REPORT INFORMATION
  Report Type: 
  Country: None (occurrence: None)
  Receive Date: 20120222
  Receipt Date: 20120215
  Transmission Date: 20120608
  Serious: Yes (Other)
  Sender: FDA-Public Use
  Company Number: PHHY2012IT014276

PATIENT
  Age: 14 Year
  Sex: Male

DRUGS (1)
  1. EXJADE [Suspect]
     Indication: CHELATION THERAPY

REACTIONS (4)
  - BONE SWELLING [None]
  - FATIGUE [None]
  - ARTHRALGIA [None]
  - ABASIA [None]
